FAERS Safety Report 10103295 (Version 1)
Quarter: 2014Q2

REPORT INFORMATION
  Report Type: Spontaneous
  Country: US (occurrence: US)
  Receive Date: 20140424
  Receipt Date: 20140424
  Transmission Date: 20141212
  Serious: No
  Sender: FDA-Public Use
  Company Number: US-BRISTOL-MYERS SQUIBB COMPANY-20221750

PATIENT
  Age: 82 Year
  Sex: Male

DRUGS (7)
  1. ELIQUIS [Suspect]
     Dates: start: 20131217
  2. ATENOLOL [Concomitant]
  3. LIPITOR [Concomitant]
  4. FINASTERIDE [Concomitant]
  5. OMEPRAZOLE [Concomitant]
  6. LOSARTAN [Concomitant]
  7. ROPINIROLE [Concomitant]

REACTIONS (4)
  - Epistaxis [Unknown]
  - Contusion [Unknown]
  - Oedema peripheral [Unknown]
  - Joint swelling [Unknown]
